FAERS Safety Report 23833667 (Version 4)
Quarter: 2024Q4

REPORT INFORMATION
  Report Type: Spontaneous
  Country: JP (occurrence: JP)
  Receive Date: 20240508
  Receipt Date: 20241217
  Transmission Date: 20250114
  Serious: Yes (Hospitalization, Other)
  Sender: BRISTOL-MYERS SQUIBB COMPANY
  Company Number: JP-BRISTOL-MYERS SQUIBB COMPANY-BMS-2019-116157

PATIENT
  Age: 72 Year
  Sex: Male

DRUGS (1)
  1. OPDIVO [Suspect]
     Active Substance: NIVOLUMAB
     Indication: Non-small cell lung cancer recurrent
     Route: 041

REACTIONS (5)
  - Adrenal insufficiency [Recovering/Resolving]
  - Hypothyroidism [Recovering/Resolving]
  - Supraventricular tachycardia [Recovering/Resolving]
  - Cardiac failure [Recovering/Resolving]
  - Stress cardiomyopathy [Recovering/Resolving]
